FAERS Safety Report 7486911-1 (Version None)
Quarter: 2011Q2

REPORT INFORMATION
  Report Type: 
  Country: None (occurrence: None)
  Receive Date: 20110517
  Receipt Date: 20100513
  Transmission Date: 20111010
  Serious: No
  Sender: FDA-Public Use
  Company Number: US-AMGEN-TCS410129

PATIENT
  Age: 41 Year
  Sex: Female
  Weight: 70.4 kg

DRUGS (2)
  1. ENBREL [Suspect]
     Indication: PSORIASIS
     Dosage: 50 MG, QWK
     Route: 058
     Dates: start: 20100120
  2. ALPRAZOLAM [Concomitant]
     Dosage: .5 MG, UNK

REACTIONS (2)
  - CONTUSION [None]
  - TENDERNESS [None]
